FAERS Safety Report 17810329 (Version 1)
Quarter: 2020Q2

REPORT INFORMATION
  Report Type: Spontaneous
  Country: IL (occurrence: IL)
  Receive Date: 20200521
  Receipt Date: 20200521
  Transmission Date: 20200714
  Serious: Yes (Hospitalization)
  Sender: FDA-Public Use
  Company Number: IL-ROCHE-2605781

PATIENT
  Sex: Female

DRUGS (5)
  1. MABTHERA [Suspect]
     Active Substance: RITUXIMAB
     Indication: SUSAC^S SYNDROME
     Route: 065
  2. PREDNISONE. [Suspect]
     Active Substance: PREDNISONE
     Indication: SUSAC^S SYNDROME
     Route: 065
     Dates: end: 201904
  3. PREDNISONE. [Suspect]
     Active Substance: PREDNISONE
     Dosage: THERAPY RESTARTED
     Route: 065
     Dates: start: 2019
  4. IMMUNOGLOBULINS [IMMUNOGLOBULINS NOS] [Suspect]
     Active Substance: IMMUNE GLOBULIN NOS
     Indication: SUSAC^S SYNDROME
     Route: 042
  5. CELLCEPT [Suspect]
     Active Substance: MYCOPHENOLATE MOFETIL\MYCOPHENOLATE MOFETIL HYDROCHLORIDE
     Indication: SUSAC^S SYNDROME
     Route: 065

REACTIONS (4)
  - Visual impairment [Unknown]
  - Intentional product use issue [Unknown]
  - Off label use [Unknown]
  - Asthenia [Unknown]
